FAERS Safety Report 7549841-2 (Version None)
Quarter: 2011Q2

REPORT INFORMATION
  Report Type: 
  Country: None (occurrence: None)
  Receive Date: 20110615
  Receipt Date: 20110606
  Transmission Date: 20111010
  Serious: Yes (Disabling)
  Sender: FDA-Public Use
  Company Number: PHHY2011US40791

PATIENT
  Sex: Female

DRUGS (4)
  1. GILENYA [Suspect]
     Dosage: 0.5 MG, DAILY
     Route: 048
     Dates: start: 20101201
  2. GABAPENTIN [Concomitant]
     Indication: MULTIPLE SCLEROSIS
     Dosage: 300 MG, TID
     Route: 048
  3. MECLIZINE [Concomitant]
  4. DIAZEPAM [Concomitant]
     Indication: MULTIPLE SCLEROSIS
     Dosage: 5 MG, PRN
     Route: 048

REACTIONS (1)
  - PAIN [None]
